FAERS Safety Report 5763742-1 (Version None)
Quarter: 2008Q2

REPORT INFORMATION
  Report Type: 
  Country: None (occurrence: None)
  Receive Date: 20080610
  Receipt Date: 20080603
  Transmission Date: 20081010
  Serious: Yes (Disabling)
  Sender: FDA-Public Use
  Company Number: GB-BAYER-200811368BNE

PATIENT
  Age: 76 Year
  Sex: Male

DRUGS (2)
  1. NEXAVAR [Suspect]
     Indication: PLATELET COUNT DECREASED
     Route: 048
     Dates: start: 20080311
  2. NEXAVAR [Suspect]
     Route: 048

REACTIONS (1)
  - DIARRHOEA [None]
